FAERS Safety Report 6250071-5 (Version None)
Quarter: 2009Q2

REPORT INFORMATION
  Report Type: 
  Country: None (occurrence: None)
  Receive Date: 20090629
  Receipt Date: 20090616
  Transmission Date: 20091009
  Serious: Yes (Hospitalization)
  Sender: FDA-Public Use
  Company Number: JP-AMGEN-US352036

PATIENT
  Sex: Male
  Weight: 70 kg

DRUGS (10)
  1. ENBREL [Suspect]
     Indication: RHEUMATOID ARTHRITIS
     Route: 058
     Dates: start: 20090115, end: 20090428
  2. ENBREL [Suspect]
     Route: 058
     Dates: start: 20090514, end: 20090602
  3. FLUITRAN [Concomitant]
     Indication: HYPERTENSION
     Route: 048
     Dates: end: 20090602
  4. CYANOCOBALAMIN [Concomitant]
     Route: 048
  5. GASTER [Concomitant]
     Route: 048
  6. BROTIZOLAM [Concomitant]
     Route: 048
  7. AMARYL [Concomitant]
     Route: 048
  8. PANALDINE [Concomitant]
     Indication: CEREBRAL INFARCTION
     Route: 048
     Dates: end: 20090528
  9. OLMETEC [Concomitant]
     Indication: HYPERTENSION
     Route: 048
     Dates: end: 20090605
  10. SELBEX [Concomitant]
     Route: 048

REACTIONS (7)
  - ANTINUCLEAR ANTIBODY INCREASED [None]
  - CHOLECYSTITIS ACUTE [None]
  - DNA ANTIBODY POSITIVE [None]
  - HEPATIC FUNCTION ABNORMAL [None]
  - INFECTION [None]
  - PLEURAL EFFUSION [None]
  - SYSTEMIC LUPUS ERYTHEMATOSUS [None]
